FAERS Safety Report 15825144 (Version 2)
Quarter: 2019Q1

REPORT INFORMATION
  Report Type: Spontaneous
  Country: US (occurrence: US)
  Receive Date: 20190115
  Receipt Date: 20190128
  Transmission Date: 20190417
  Serious: No
  Sender: FDA-Public Use
  Company Number: US-PFIZER INC-2019013811

PATIENT
  Age: 88 Year
  Sex: Female
  Weight: 54.88 kg

DRUGS (1)
  1. ADVIL [Suspect]
     Active Substance: IBUPROFEN
     Indication: PAIN IN EXTREMITY
     Dosage: 200MG TWICE DAILY, (200MG, ONE AT 11:00 AM AND ONE AT 11:00 PM)
     Dates: start: 20181124

REACTIONS (1)
  - Drug ineffective [Unknown]
